FAERS Safety Report 5297951-5 (Version None)
Quarter: 2007Q2

REPORT INFORMATION
  Report Type: 
  Country: None (occurrence: None)
  Receive Date: 20070416
  Receipt Date: 20070412
  Transmission Date: 20071010
  Serious: Yes (Other)
  Sender: FDA-Public Use
  Company Number: FR-GLAXOSMITHKLINE-B0466204A

PATIENT
  Sex: Female

DRUGS (1)
  1. VALACYCLOVIR HCL [Suspect]
     Route: 048
     Dates: start: 20060301, end: 20070301

REACTIONS (3)
  - GASTROINTESTINAL DISORDER [None]
  - HERPES ZOSTER OPHTHALMIC [None]
  - VISUAL ACUITY REDUCED [None]
